FAERS Safety Report 7124795 (Version 33)
Quarter: 2017Q1

REPORT INFORMATION
  Report Type: Spontaneous
  Country: CA (occurrence: CA)
  Receive Date: 20090922
  Receipt Date: 20170223
  Transmission Date: 20170429
  Serious: Yes (Hospitalization, Other)
  Sender: FDA-Public Use
  Company Number: CA-ROCHE-GNE290636

PATIENT
  Age: 54 Year
  Sex: Female

DRUGS (20)
  1. THEOPHYLLINE [Concomitant]
     Active Substance: THEOPHYLLINE ANHYDROUS
     Indication: PRODUCT USED FOR UNKNOWN INDICATION
     Route: 065
  2. XOLAIR [Suspect]
     Active Substance: OMALIZUMAB
     Dosage: 375 MG, BIW
     Route: 058
     Dates: start: 20160614, end: 20160614
  3. CORTISONE [Suspect]
     Active Substance: CORTISONE\HYDROCORTISONE
     Indication: ASTHMA
     Dosage: 50 MG, UNK
     Route: 065
     Dates: start: 20160827
  4. CORTISONE [Suspect]
     Active Substance: CORTISONE\HYDROCORTISONE
     Indication: DYSPNOEA
     Dosage: 50 MG, UNK
     Route: 065
     Dates: start: 20160723
  5. XOLAIR [Suspect]
     Active Substance: OMALIZUMAB
     Indication: ASTHMA
     Dosage: 375 MG, BIW
     Route: 058
     Dates: start: 20090428
  6. XOLAIR [Suspect]
     Active Substance: OMALIZUMAB
     Dosage: UNK
     Route: 058
     Dates: start: 20161206
  7. XOLAIR [Suspect]
     Active Substance: OMALIZUMAB
     Dosage: UNK
     Route: 058
     Dates: start: 20160426, end: 20160516
  8. XOLAIR [Suspect]
     Active Substance: OMALIZUMAB
     Dosage: UNK
     Route: 058
     Dates: start: 20161025
  9. PULMICORT TURBUHALER [Concomitant]
     Active Substance: BUDESONIDE
     Indication: PRODUCT USED FOR UNKNOWN INDICATION
     Route: 065
  10. BRICANYL [Concomitant]
     Active Substance: TERBUTALINE SULFATE
     Indication: PRODUCT USED FOR UNKNOWN INDICATION
     Dosage: UNK
     Route: 065
  11. XOLAIR [Suspect]
     Active Substance: OMALIZUMAB
     Dosage: UNK
     Route: 058
     Dates: start: 20150428
  12. XOLAIR [Suspect]
     Active Substance: OMALIZUMAB
     Dosage: UNK
     Route: 058
     Dates: start: 20160816
  13. XOLAIR [Suspect]
     Active Substance: OMALIZUMAB
     Dosage: UNK
     Route: 058
     Dates: start: 20160927
  14. XOLAIR [Suspect]
     Active Substance: OMALIZUMAB
     Dosage: UNK
     Route: 058
  15. CORTISONE [Suspect]
     Active Substance: CORTISONE\HYDROCORTISONE
     Indication: DIABETES MELLITUS
     Dosage: 10 MG, QD
     Route: 065
  16. VENTOLIN [Concomitant]
     Active Substance: ALBUTEROL SULFATE
     Indication: PRODUCT USED FOR UNKNOWN INDICATION
     Route: 065
  17. HYDROXYZINE [Concomitant]
     Active Substance: HYDROXYZINE HYDROCHLORIDE
     Dosage: 25 MG, UNK
     Route: 065
  18. SINGULAIR [Concomitant]
     Active Substance: MONTELUKAST SODIUM
     Indication: PRODUCT USED FOR UNKNOWN INDICATION
     Route: 065
  19. XOLAIR [Suspect]
     Active Substance: OMALIZUMAB
     Dosage: UNK
     Route: 058
     Dates: start: 20161011
  20. HYDROXYZINE [Concomitant]
     Active Substance: HYDROXYZINE HYDROCHLORIDE
     Indication: PRODUCT USED FOR UNKNOWN INDICATION
     Dosage: 50 MG, UNK
     Route: 065

REACTIONS (42)
  - Pneumonia [Unknown]
  - Myocardial infarction [Unknown]
  - Emphysema [Unknown]
  - Headache [Unknown]
  - Hypoaesthesia [Not Recovered/Not Resolved]
  - Malaise [Unknown]
  - Asthma [Not Recovered/Not Resolved]
  - Vaginal infection [Unknown]
  - Drug ineffective [Unknown]
  - Salivary hypersecretion [Unknown]
  - Nasopharyngitis [Unknown]
  - Gastroenteritis [Unknown]
  - Dyspepsia [Unknown]
  - Hypertension [Unknown]
  - Blood glucose increased [Unknown]
  - Frequent bowel movements [Unknown]
  - Sleep apnoea syndrome [Unknown]
  - Oropharyngeal pain [Unknown]
  - Faeces discoloured [Unknown]
  - Oral fungal infection [Unknown]
  - Arthralgia [Unknown]
  - Migraine [Not Recovered/Not Resolved]
  - Dyspnoea exertional [Unknown]
  - Somnolence [Unknown]
  - Diabetes mellitus [Unknown]
  - Abdominal pain [Not Recovered/Not Resolved]
  - Hypothyroidism [Unknown]
  - Palpitations [Unknown]
  - Fibromyalgia [Unknown]
  - Visual acuity reduced [Unknown]
  - Weight increased [Unknown]
  - Influenza [Unknown]
  - Sense of oppression [Not Recovered/Not Resolved]
  - Feeling abnormal [Unknown]
  - Dyspnoea [Unknown]
  - Depression [Not Recovered/Not Resolved]
  - Hypersensitivity [Unknown]
  - Adrenal disorder [Unknown]
  - Injection site reaction [Recovering/Resolving]
  - Dizziness [Not Recovered/Not Resolved]
  - Gastrointestinal infection [Recovering/Resolving]
  - Pulmonary pain [Unknown]

NARRATIVE: CASE EVENT DATE: 20150106
